FAERS Safety Report 5810640-0 (Version None)
Quarter: 2008Q3

REPORT INFORMATION
  Report Type: 
  Country: None (occurrence: None)
  Receive Date: 20080710
  Receipt Date: 20080627
  Transmission Date: 20090109
  Serious: Yes (Other)
  Sender: FDA-Public Use
  Company Number: FABR-1000060

PATIENT
  Age: 36 Year
  Sex: Male

DRUGS (5)
  1. FABRAZYME              (AGALSIDASE BETA) FOR SOLUTION FOR INFUSION [Suspect]
     Indication: FABRY'S DISEASE
     Dosage: 75 MG. Q2W. INTRAVENOUS
     Route: 042
     Dates: start: 20030801
  2. GABAPENTIN [Concomitant]
  3. TEGRETOL [Concomitant]
  4. BENADRYL [Concomitant]
  5. ACETAMINOPHEN [Concomitant]

REACTIONS (4)
  - CHEST PAIN [None]
  - DISEASE PROGRESSION [None]
  - PERITONEAL DIALYSIS COMPLICATION [None]
  - RENAL FAILURE [None]
